FAERS Safety Report 19125681 (Version 2)
Quarter: 2021Q2

REPORT INFORMATION
  Report Type: Spontaneous
  Country: BR (occurrence: BR)
  Receive Date: 20210412
  Receipt Date: 20210504
  Transmission Date: 20210717
  Serious: Yes (Death, Life-Threatening, Hospitalization, Other)
  Sender: FDA-Public Use
  Company Number: NVSC2021BR081319

PATIENT
  Age: 26 Year

DRUGS (2)
  1. TAFINLAR [Suspect]
     Active Substance: DABRAFENIB MESYLATE
     Indication: PRODUCT USED FOR UNKNOWN INDICATION
     Dosage: UNK
     Route: 065
  2. MEKINIST [Suspect]
     Active Substance: TRAMETINIB DIMETHYL SULFOXIDE
     Indication: PRODUCT USED FOR UNKNOWN INDICATION
     Dosage: UNK
     Route: 065

REACTIONS (13)
  - Seizure [Unknown]
  - Transient ischaemic attack [Unknown]
  - Hallucination, visual [Unknown]
  - Bradycardia [Unknown]
  - Vomiting [Unknown]
  - Polyp [Unknown]
  - Depressed level of consciousness [Unknown]
  - Nausea [Unknown]
  - Death [Fatal]
  - Brain herniation [Unknown]
  - Agitation [Unknown]
  - Confusional state [Unknown]
  - Cerebral ventricle dilatation [Unknown]

NARRATIVE: CASE EVENT DATE: 20200105
